FAERS Safety Report 19577620 (Version 2)
Quarter: 2024Q2

REPORT INFORMATION
  Report Type: Report from Study
  Country: DE (occurrence: DE)
  Receive Date: 20210719
  Receipt Date: 20240419
  Transmission Date: 20240715
  Serious: Yes (Hospitalization, Other)
  Sender: FDA-Public Use
  Company Number: DE-ROCHE-2669047

PATIENT
  Age: 52 Year
  Sex: Female
  Weight: 62 kg

DRUGS (19)
  1. PANTOPRAZOLE [Suspect]
     Active Substance: PANTOPRAZOLE
     Indication: Product used for unknown indication
     Route: 065
  2. TRIAMCINOLONE ACETONIDE [Concomitant]
     Active Substance: TRIAMCINOLONE ACETONIDE
     Indication: Product used for unknown indication
     Route: 065
     Dates: start: 20200409
  3. TRIAMCINOLONE ACETONIDE [Concomitant]
     Active Substance: TRIAMCINOLONE ACETONIDE
     Indication: Product used for unknown indication
     Dosage: INTO SPINAL FLUID
     Route: 065
  4. NOVALGIN [Concomitant]
     Indication: Product used for unknown indication
     Route: 065
  5. CORTISONE [Suspect]
     Active Substance: CORTISONE
     Indication: Product used for unknown indication
     Dosage: ALTERNATIVE TO VOLON A
     Route: 065
     Dates: start: 20200810, end: 20200813
  6. COMIRNATY (TOZINAMERAN) [Suspect]
     Active Substance: TOZINAMERAN
     Indication: COVID-19 immunisation
     Dosage: 2ND VACCINE
     Route: 065
     Dates: start: 20210526
  7. COMIRNATY (TOZINAMERAN) [Suspect]
     Active Substance: TOZINAMERAN
     Indication: COVID-19 immunisation
     Dosage: SINGLE DOSE
     Route: 065
     Dates: start: 20210415, end: 20210415
  8. CHOLECALCIFEROL [Concomitant]
     Active Substance: CHOLECALCIFEROL
     Indication: Product used for unknown indication
     Route: 065
  9. IBUPROFEN [Concomitant]
     Active Substance: IBUPROFEN
     Indication: Product used for unknown indication
     Route: 065
  10. OCREVUS [Suspect]
     Active Substance: OCRELIZUMAB
     Indication: Relapsing-remitting multiple sclerosis
     Route: 042
     Dates: start: 20201028
  11. OCREVUS [Suspect]
     Active Substance: OCRELIZUMAB
     Indication: Relapsing-remitting multiple sclerosis
     Route: 042
     Dates: start: 20180523
  12. OCREVUS [Suspect]
     Active Substance: OCRELIZUMAB
     Indication: Relapsing-remitting multiple sclerosis
     Route: 042
     Dates: start: 20210812
  13. ALBUTEROL [Concomitant]
     Active Substance: ALBUTEROL
     Indication: Product used for unknown indication
     Route: 065
  14. DOMPERIDONE [Concomitant]
     Active Substance: DOMPERIDONE
     Indication: Product used for unknown indication
     Route: 065
  15. CANNABIS SATIVA FLOWERING TOP [Concomitant]
     Active Substance: CANNABIS SATIVA FLOWERING TOP
     Indication: Product used for unknown indication
     Dosage: SEVERAL TIMES PER DAY AND IN THE NIGHT
     Route: 065
  16. FOLIC ACID [Concomitant]
     Active Substance: FOLIC ACID
     Indication: Product used for unknown indication
     Route: 065
  17. OXYCODONE [Concomitant]
     Active Substance: OXYCODONE\OXYCODONE HYDROCHLORIDE
     Indication: Product used for unknown indication
     Dosage: 5 MG AS NEEDED (UP TO 4 TABLETS DAILY) AS REQUIRED
     Route: 065
  18. COTRIMOXAZOLE [Concomitant]
     Active Substance: SULFAMETHOXAZOLE\TRIMETHOPRIM
     Indication: Product used for unknown indication
     Route: 065
  19. LACTIC ACID, DL-\SODIUM LACTATE [Concomitant]
     Active Substance: LACTIC ACID, DL-\SODIUM LACTATE
     Indication: Product used for unknown indication
     Route: 065

REACTIONS (45)
  - Cushing^s syndrome [Not Recovered/Not Resolved]
  - Alopecia [Recovered/Resolved]
  - Inappropriate schedule of product administration [Unknown]
  - Throat irritation [Recovered/Resolved]
  - Tooth fracture [Recovered/Resolved]
  - SARS-CoV-2 antibody test negative [Not Recovered/Not Resolved]
  - Blood pressure increased [Recovered/Resolved]
  - Weight increased [Not Recovered/Not Resolved]
  - Urogenital fistula [Recovered/Resolved]
  - Atypical migraine [Unknown]
  - Cataract [Not Recovered/Not Resolved]
  - Nasopharyngitis [Recovered/Resolved]
  - Chronic gastritis [Not Recovered/Not Resolved]
  - Seborrhoeic keratosis [Unknown]
  - Bone density decreased [Not Recovered/Not Resolved]
  - Intervertebral disc protrusion [Recovered/Resolved]
  - Dry skin [Recovered/Resolved]
  - Cystitis [Not Recovered/Not Resolved]
  - Vitamin D decreased [Recovered/Resolved]
  - Muscular weakness [Not Recovered/Not Resolved]
  - Calcinosis [Recovered/Resolved]
  - B-lymphocyte count decreased [Recovered/Resolved]
  - Platelet count decreased [Recovered/Resolved]
  - Folate deficiency [Recovered/Resolved]
  - Lymphocyte count decreased [Recovered/Resolved]
  - Uterine enlargement [Recovered/Resolved]
  - Platelet count increased [Recovered/Resolved]
  - Intestinal atony [Unknown]
  - Throat tightness [Recovered/Resolved]
  - Muscle twitching [Recovered/Resolved]
  - Muscle spasticity [Not Recovered/Not Resolved]
  - Chills [Unknown]
  - Urine odour abnormal [Recovering/Resolving]
  - Oropharyngeal pain [Recovered/Resolved]
  - Osteoporosis [Not Recovered/Not Resolved]
  - Off label use [Unknown]
  - Asthenia [Not Recovered/Not Resolved]
  - Gamma-glutamyltransferase increased [Recovered/Resolved]
  - Pain [Recovered/Resolved]
  - Pyrexia [Unknown]
  - Flatulence [Recovered/Resolved]
  - Faeces soft [Recovered/Resolved]
  - Wound [Recovered/Resolved]
  - Urinary tract infection [Recovered/Resolved]
  - Oral herpes [Recovered/Resolved]

NARRATIVE: CASE EVENT DATE: 20180701
